FAERS Safety Report 16102207 (Version 5)
Quarter: 2020Q1

REPORT INFORMATION
  Report Type: Report from Study
  Country: US (occurrence: US)
  Receive Date: 20190321
  Receipt Date: 20200318
  Transmission Date: 20200409
  Serious: Yes (Hospitalization, Other)
  Sender: FDA-Public Use
  Company Number: US-ACTELION-A-US2018-166350

PATIENT
  Age: 69 Year
  Sex: Female
  Weight: 136.05 kg

DRUGS (3)
  1. TRACLEER [Suspect]
     Active Substance: BOSENTAN
     Indication: PULMONARY ARTERIAL HYPERTENSION
     Dosage: 125 MG, BID
     Route: 048
  2. TRACLEER [Suspect]
     Active Substance: BOSENTAN
     Dosage: 125 MG, UNK
     Route: 048
     Dates: end: 20180202
  3. XARELTO [Concomitant]
     Active Substance: RIVAROXABAN

REACTIONS (13)
  - Blood pressure decreased [Unknown]
  - Nasopharyngitis [Unknown]
  - Cardiac pacemaker insertion [Unknown]
  - Haemorrhage [Unknown]
  - Malaise [Unknown]
  - Product dose omission [Unknown]
  - Unevaluable event [Unknown]
  - Pulmonary arterial hypertension [Unknown]
  - Oxygen saturation decreased [Unknown]
  - Bronchitis [Unknown]
  - Asthenia [Unknown]
  - Cerebrovascular accident [Unknown]
  - Dyspnoea [Unknown]

NARRATIVE: CASE EVENT DATE: 20180202
